FAERS Safety Report 9075060 (Version 1)
Quarter: 2013Q1

REPORT INFORMATION
  Report Type: Spontaneous
  Country: US (occurrence: US)
  Receive Date: 20130129
  Receipt Date: 20130129
  Transmission Date: 20140127
  Serious: No
  Sender: FDA-Public Use
  Company Number: US-BAUSCH-2012BL003925

PATIENT
  Age: 52 Year
  Sex: Female

DRUGS (1)
  1. ZYLET [Suspect]
     Indication: EYE INFECTION
     Route: 047
     Dates: start: 201206, end: 201206

REACTIONS (1)
  - Vision blurred [Not Recovered/Not Resolved]
